FAERS Safety Report 4579770-8 (Version None)
Quarter: 2005Q1

REPORT INFORMATION
  Report Type: 
  Country: None (occurrence: None)
  Receive Date: 20050209
  Receipt Date: 20050124
  Transmission Date: 20050727
  Serious: Yes (Other)
  Sender: FDA-Public Use
  Company Number: 601740

PATIENT
  Age: 3 Year
  Sex: 0

DRUGS (2)
  1. RECOMBINATE [Suspect]
     Indication: SURGERY
     Dosage: 60000 IU; PRN;
     Route: 032
     Dates: start: 20050101, end: 20050101
  2. ADVATE (ANTIHEMOPHILIC FACTOR (RECOMBINANT), PLASMA/ ALBUMIN FREE METH [Suspect]
     Indication: SURGERY
     Dosage: PRN
     Dates: start: 20050103, end: 20050110

REACTIONS (1)
  - FACTOR VIII INHIBITION [None]
